FAERS Safety Report 6361226-3 (Version None)
Quarter: 2009Q3

REPORT INFORMATION
  Report Type: 
  Country: None (occurrence: None)
  Receive Date: 20090918
  Receipt Date: 20090908
  Transmission Date: 20100115
  Serious: Yes (Other)
  Sender: FDA-Public Use
  Company Number: US-EISAI INC.-E3810-03104-SPO-US

PATIENT
  Age: 59 Year
  Sex: Female
  Weight: 78 kg

DRUGS (2)
  1. ACIPHEX [Suspect]
     Route: 048
     Dates: start: 20080310, end: 20090701
  2. DIOVAN [Concomitant]
     Route: 048
     Dates: start: 20060101

REACTIONS (1)
  - OROPHARYNGEAL PAIN [None]
